FAERS Safety Report 25330973 (Version 2)
Quarter: 2025Q2

REPORT INFORMATION
  Report Type: Spontaneous
  Country: US (occurrence: US)
  Receive Date: 20250519
  Receipt Date: 20250527
  Transmission Date: 20250717
  Serious: Yes (Other)
  Sender: SANDOZ
  Company Number: US-SANDOZ-SDZ2025US033250

PATIENT
  Sex: Female

DRUGS (1)
  1. RECLAST [Suspect]
     Active Substance: ZOLEDRONIC ACID
     Indication: Product used for unknown indication
     Route: 065
     Dates: start: 20241108

REACTIONS (7)
  - Arthropathy [Unknown]
  - Amnesia [Unknown]
  - Abdominal discomfort [Unknown]
  - Gait disturbance [Unknown]
  - Hot flush [Unknown]
  - Insomnia [Unknown]
  - Back pain [Unknown]
